FAERS Safety Report 5533702-4 (Version None)
Quarter: 2007Q4

REPORT INFORMATION
  Report Type: 
  Country: None (occurrence: None)
  Receive Date: 20071120
  Receipt Date: 20070723
  Transmission Date: 20080405
  Serious: No
  Sender: FDA-Public Use
  Company Number: WAES 0707USA02171

PATIENT
  Age: 65 Year
  Sex: Female
  Weight: 58.9676 kg

DRUGS (5)
  1. JANUVIA [Suspect]
     Indication: TYPE 2 DIABETES MELLITUS
     Dosage: 100 MG/DAILY/PO
     Route: 048
     Dates: start: 20070524, end: 20070701
  2. AVANDIA [Concomitant]
  3. BENICAR [Concomitant]
  4. GLUCOVANCE [Concomitant]
  5. ZOCOR [Concomitant]

REACTIONS (1)
  - HYPOGLYCAEMIA [None]
